FAERS Safety Report 9147933 (Version 1)
Quarter: 2013Q1

REPORT INFORMATION
  Report Type: Spontaneous
  Country: US (occurrence: US)
  Receive Date: 20130304
  Receipt Date: 20130304
  Transmission Date: 20140127
  Serious: Yes (Other)
  Sender: FDA-Public Use
  Company Number: US-RB-042533-12

PATIENT
  Age: 64 Year
  Sex: Male

DRUGS (6)
  1. SUBOXONE TABLET [Suspect]
     Route: 060
     Dates: start: 201003, end: 201105
  2. SUBOXONE TABLET [Suspect]
     Indication: DRUG DEPENDENCE
     Route: 060
     Dates: start: 201209
  3. XANAX [Suspect]
     Indication: PRODUCT USED FOR UNKNOWN INDICATION
     Dosage: DOSAGE DETAILS UNKNOWN
     Route: 065
     Dates: start: 201205
  4. NORVAS [Concomitant]
     Indication: HYPERTENSION
     Route: 065
     Dates: start: 2010
  5. SEROQUEL [Concomitant]
     Indication: INSOMNIA
     Route: 065
  6. ANTIDEPRESSANT [Concomitant]
     Indication: DEPRESSION
     Route: 065

REACTIONS (7)
  - Substance abuse [Recovered/Resolved]
  - Drug abuse [Unknown]
  - Fall [Recovered/Resolved]
  - Rib fracture [Recovered/Resolved]
  - Malaise [Recovered/Resolved]
  - Excoriation [Recovered/Resolved]
  - Disorientation [Recovered/Resolved]
